FAERS Safety Report 10449426 (Version 1)
Quarter: 2014Q3

REPORT INFORMATION
  Report Type: Spontaneous
  Country: IN (occurrence: None)
  Receive Date: 20140910
  Receipt Date: 20140910
  Transmission Date: 20150326
  Serious: Yes (Death, Hospitalization)
  Sender: FDA-Public Use
  Company Number: FK201403622

PATIENT
  Age: 3 Year
  Sex: Male

DRUGS (11)
  1. MYCOPHENOLATE (MYCOPHENOLATE MOFETIL) (500 MILLIGRAM, UNKNOWN) [Suspect]
     Active Substance: MYCOPHENOLIC ACID
     Indication: GRAFT VERSUS HOST DISEASE
  2. TACROLIMUS. [Concomitant]
     Active Substance: TACROLIMUS
  3. INFLIXIMAB [Concomitant]
     Active Substance: INFLIXIMAB
  4. CYCLOPHOSPHAMIDE (MANUFACTURER UNKNOWN) (CYCLOPHOSPHAMIDE) (CYCLOPHOSPHAMIDE) [Suspect]
     Active Substance: CYCLOPHOSPHAMIDE
     Indication: GRAFT VERSUS HOST DISEASE
  5. METHYLPREDNISOLONE [Concomitant]
     Active Substance: METHYLPREDNISOLONE
  6. SIROLIMUS. [Concomitant]
     Active Substance: SIROLIMUS
  7. CAMPATH (ALEMTUZUMAB) [Concomitant]
  8. CYCLOSPORINE (CICLOSPORIN) [Suspect]
     Active Substance: CYCLOSPORINE
     Indication: GRAFT VERSUS HOST DISEASE
  9. FLUDARABINE (MANUFACTURER UNKNOWN) (FLUDARABINE PHOSPHATE) (FLUDARABINE PHOSPHATE) [Suspect]
     Active Substance: FLUDARABINE PHOSPHATE
     Indication: GRAFT VERSUS HOST DISEASE
  10. ETANERCEPT [Concomitant]
     Active Substance: ETANERCEPT
  11. THIOTEPA (THIOTEPA) [Suspect]
     Active Substance: THIOTEPA
     Indication: GRAFT VERSUS HOST DISEASE

REACTIONS (11)
  - Blood alkaline phosphatase increased [None]
  - Respiratory distress [None]
  - Convulsion [None]
  - Histiocytosis haematophagic [None]
  - Pneumonia cytomegaloviral [None]
  - Diarrhoea [None]
  - Jaundice [None]
  - Rotavirus test positive [None]
  - Rash [None]
  - Hyperbilirubinaemia [None]
  - Bone marrow failure [None]
